FAERS Safety Report 13471939 (Version 2)
Quarter: 2017Q2

REPORT INFORMATION
  Report Type: Spontaneous
  Country: DE (occurrence: DE)
  Receive Date: 20170424
  Receipt Date: 20170513
  Transmission Date: 20170830
  Serious: Yes (Other)
  Sender: FDA-Public Use
  Company Number: DE-TORRENT-00006380

PATIENT
  Age: 39 Year
  Sex: Female
  Weight: 68 kg

DRUGS (3)
  1. ROXITHROMYCIN [Concomitant]
     Active Substance: ROXITHROMYCIN
  2. AMOXICILLIN. [Concomitant]
     Active Substance: AMOXICILLIN
  3. LEVOFLOXACIN. [Suspect]
     Active Substance: LEVOFLOXACIN

REACTIONS (3)
  - Tendon disorder [Not Recovered/Not Resolved]
  - Tendonitis [Not Recovered/Not Resolved]
  - Tendon pain [Not Recovered/Not Resolved]

NARRATIVE: CASE EVENT DATE: 20140501
